FAERS Safety Report 10830317 (Version 1)
Quarter: 2015Q1

REPORT INFORMATION
  Report Type: Report from Study
  Country: SA (occurrence: SA)
  Receive Date: 20150219
  Receipt Date: 20150219
  Transmission Date: 20150721
  Serious: Yes (Other)
  Sender: FDA-Public Use
  Company Number: SA-SA-2015SA019485

PATIENT
  Age: 82 Year
  Sex: Male

DRUGS (3)
  1. IDARUBICIN [Suspect]
     Active Substance: IDARUBICIN
     Indication: ACUTE MYELOID LEUKAEMIA
     Route: 065
     Dates: start: 201110, end: 201209
  2. CLOFARABINE [Suspect]
     Active Substance: CLOFARABINE
     Indication: ACUTE MYELOID LEUKAEMIA
     Route: 041
     Dates: start: 201110, end: 201209
  3. ARA-C [Suspect]
     Active Substance: CYTARABINE
     Indication: ACUTE MYELOID LEUKAEMIA
     Route: 065
     Dates: start: 201110, end: 201209

REACTIONS (10)
  - Cardiac failure [Unknown]
  - Palmar-plantar erythrodysaesthesia syndrome [Recovered/Resolved]
  - Mucosal inflammation [Unknown]
  - Thrombocytopenia [Unknown]
  - Rash [Recovered/Resolved]
  - Vomiting [Unknown]
  - Neutropenia [Unknown]
  - Sepsis [Unknown]
  - Bacterial infection [Unknown]
  - Fungal infection [Unknown]
